FAERS Safety Report 5012227-9 (Version None)
Quarter: 2006Q2

REPORT INFORMATION
  Report Type: 
  Country: None (occurrence: None)
  Receive Date: 20060524
  Receipt Date: 20060511
  Transmission Date: 20061013
  Serious: Yes (Other)
  Sender: FDA-Public Use
  Company Number: 2003031180

PATIENT
  Sex: Female
  Weight: 64.8644 kg

DRUGS (7)
  1. TIKOSYN [Suspect]
     Indication: ATRIAL FIBRILLATION
     Dosage: 1000 MCG (BID), ORAL
     Route: 048
     Dates: start: 20020901
  2. ACTONEL [Suspect]
     Indication: ILL-DEFINED DISORDER
     Dates: start: 20030501
  3. WARFARIN (WARFARIN) [Concomitant]
  4. CARTIA XT [Concomitant]
  5. TOPROL-XL [Concomitant]
  6. VITAMINS (VITAMINS) [Concomitant]
  7. POSTURE D ^WYETH-AYERST^ (CALCIUM PROSPHATE, COLECALCIFEROL, ERGOCALCI [Concomitant]

REACTIONS (5)
  - DIARRHOEA [None]
  - ELECTROCARDIOGRAM ABNORMAL [None]
  - FUNGUS STOOL IDENTIFIED [None]
  - HEART RATE IRREGULAR [None]
  - WEIGHT DECREASED [None]
